FAERS Safety Report 4430183-9 (Version None)
Quarter: 2004Q3

REPORT INFORMATION
  Report Type: 
  Country: None (occurrence: None)
  Receive Date: 20040816
  Receipt Date: 20040810
  Transmission Date: 20050211
  Serious: Yes (Hospitalization)
  Sender: FDA-Public Use
  Company Number: 6009976

PATIENT
  Age: 71 Year
  Sex: Female

DRUGS (4)
  1. BISOPROLOL FUMARATE [Suspect]
     Indication: HYPERTENSION
     Dosage: 5 MG ORAL
     Route: 048
     Dates: start: 20040611, end: 20040729
  2. PRAVASTATIN [Concomitant]
  3. NORVASC [Concomitant]
  4. NU-LOTAN (LOSARTAN POTASSIUM) [Concomitant]

REACTIONS (1)
  - ANAEMIA [None]
